FAERS Safety Report 16136996 (Version 1)
Quarter: 2019Q2

REPORT INFORMATION
  Report Type: Spontaneous
  Country: FR (occurrence: FR)
  Receive Date: 20190401
  Receipt Date: 20190401
  Transmission Date: 20190711
  Serious: Yes (Hospitalization)
  Sender: FDA-Public Use
  Company Number: FR-TEVA-2019-FR-1032789

PATIENT
  Age: 55 Year
  Sex: Female

DRUGS (1)
  1. ALPRAZOLAM. [Suspect]
     Active Substance: ALPRAZOLAM
     Indication: TOXICITY TO VARIOUS AGENTS
     Route: 048
     Dates: start: 20180918

REACTIONS (3)
  - Toxicity to various agents [Recovered/Resolved]
  - Bradycardia [Recovered/Resolved]
  - Somnolence [Recovered/Resolved]

NARRATIVE: CASE EVENT DATE: 20180918
